FAERS Safety Report 9671303 (Version 2)
Quarter: 2013Q4

REPORT INFORMATION
  Report Type: Spontaneous
  Country: US (occurrence: US)
  Receive Date: 20131106
  Receipt Date: 20131106
  Transmission Date: 20140711
  Serious: Yes (Other)
  Sender: FDA-Public Use
  Company Number: PHHY2013US087422

PATIENT
  Age: 44 Year
  Sex: Female

DRUGS (4)
  1. LIORESAL INTRATECAL [Suspect]
     Indication: MUSCLE SPASTICITY
     Dosage: 249.9 MG, PER DAY
     Route: 037
     Dates: end: 20130806
  2. CLONAZEPAM [Suspect]
     Dosage: UNK UKN, UNK
  3. PERCOCET [Suspect]
     Dosage: UNK UKN, UNK
  4. VALIUM [Suspect]
     Dosage: UNK UKN, UNK

REACTIONS (7)
  - Pyrexia [Unknown]
  - Implant site infection [Recovered/Resolved]
  - Pain [Unknown]
  - Bacterial infection [Recovered/Resolved]
  - Implant site discharge [Unknown]
  - Implant site erythema [Unknown]
  - Implant site swelling [Unknown]
